FAERS Safety Report 10846345 (Version 2)
Quarter: 2015Q1

REPORT INFORMATION
  Report Type: Spontaneous
  Country: DE (occurrence: DE)
  Receive Date: 20150220
  Receipt Date: 20150326
  Transmission Date: 20150721
  Serious: Yes (Hospitalization)
  Sender: FDA-Public Use
  Company Number: DE-AMGEN-DEUSP2015015385

PATIENT
  Sex: Male

DRUGS (15)
  1. PREDNISONE. [Suspect]
     Active Substance: PREDNISONE
     Indication: B-CELL LYMPHOMA
     Dosage: 100 MG, 5 DAYS A CYCLE
     Route: 048
     Dates: start: 20141203
  2. SULFAMETHOXAZOLE AND TRIMETHOPRIM [Concomitant]
     Active Substance: SULFAMETHOXAZOLE\TRIMETHOPRIM
     Indication: PROPHYLAXIS
     Dosage: 1920 MG, 2 DAYS/WK
     Route: 048
     Dates: start: 20141206
  3. DIPYRONE [Concomitant]
     Active Substance: DIPYRONE
     Indication: PAIN
     Dosage: 1000 MG, (1 IN 2 WK)
     Route: 042
     Dates: start: 20141202
  4. DOXORUBICIN [Suspect]
     Active Substance: DOXORUBICIN
     Indication: B-CELL LYMPHOMA
     Dosage: 86 MG, (1 IN 2 WK)
     Route: 042
     Dates: start: 20141203
  5. POTASSIUM SODIUM HYDROGEN CITRATE [Concomitant]
     Indication: BLOOD URIC ACID
     Dosage: 3 SPOONS, Q2W
     Route: 048
     Dates: start: 20141203
  6. GRANISETRON                        /01178102/ [Concomitant]
     Active Substance: GRANISETRON
     Indication: VOMITING
  7. GRANISETRON                        /01178102/ [Concomitant]
     Active Substance: GRANISETRON
     Indication: ANTIEMETIC SUPPORTIVE CARE
     Dosage: 1 MG, (1 IN 2 WK)
     Route: 042
     Dates: start: 20141203
  8. PEGFILGRASTIM [Suspect]
     Active Substance: PEGFILGRASTIM
     Indication: B-CELL LYMPHOMA
     Dosage: 6 MG, (1 IN 2 WK)
     Route: 058
     Dates: start: 20141205
  9. ACICLOVIR [Concomitant]
     Active Substance: ACYCLOVIR
     Indication: PROPHYLAXIS
     Dosage: 1600 MG, (1 IN 1 D)
     Route: 048
     Dates: start: 20141202
  10. SITAGLIPTIN METFORMIN [Concomitant]
     Active Substance: METFORMIN HYDROCHLORIDE\SITAGLIPTIN PHOSPHATE
     Indication: DIABETES MELLITUS
     Dosage: 50/850 MG, DAILY
     Route: 048
  11. RITUXIMAB [Suspect]
     Active Substance: RITUXIMAB
     Indication: B-CELL LYMPHOMA
     Dosage: 645 MG, (1 IN 2 WK)
     Route: 042
     Dates: start: 20141202
  12. CYCLOPHOSPHAMIDE. [Suspect]
     Active Substance: CYCLOPHOSPHAMIDE
     Indication: B-CELL LYMPHOMA
     Dosage: 1290 MG, (1 IN 2 WK)
     Route: 042
     Dates: start: 20141203
  13. VINCRISTINE [Suspect]
     Active Substance: VINCRISTINE
     Indication: B-CELL LYMPHOMA
     Dosage: 3.44 MG, (1 IN 2 WK)
     Route: 042
     Dates: start: 20141203
  14. PANTOPRAZOLE [Concomitant]
     Active Substance: PANTOPRAZOLE SODIUM
     Indication: PROPHYLAXIS
     Dosage: 40 MG, (1 IN 1 D)
     Route: 048
  15. MESNA. [Concomitant]
     Active Substance: MESNA
     Indication: PROPHYLAXIS
     Dosage: 900 MG, (1 IN 2 WK)
     Route: 048
     Dates: start: 20141203

REACTIONS (5)
  - Thrombocytopenia [Not Recovered/Not Resolved]
  - Nausea [Recovering/Resolving]
  - Anaemia [Not Recovered/Not Resolved]
  - Leukopenia [Not Recovered/Not Resolved]
  - General physical health deterioration [Not Recovered/Not Resolved]

NARRATIVE: CASE EVENT DATE: 20150116
